FAERS Safety Report 14832141 (Version 1)
Quarter: 2018Q2

REPORT INFORMATION
  Report Type: Spontaneous
  Country: US (occurrence: US)
  Receive Date: 20180416
  Receipt Date: 20180416
  Transmission Date: 20180711
  Serious: Yes (Hospitalization)
  Sender: FDA-Public Use
  Company Number: None

PATIENT
  Age: 38 Year
  Sex: Female
  Weight: 63.96 kg

DRUGS (1)
  1. ZOLEDRONIC ACID [Suspect]
     Active Substance: ZOLEDRONIC ACID

REACTIONS (9)
  - Chills [None]
  - Heart rate decreased [None]
  - Fibrin D dimer increased [None]
  - Pulmonary embolism [None]
  - Musculoskeletal stiffness [None]
  - Dyspnoea [None]
  - Pain [None]
  - Body temperature increased [None]
  - Blood phosphorus increased [None]

NARRATIVE: CASE EVENT DATE: 20180410
